FAERS Safety Report 8960240 (Version 2)
Quarter: 2012Q4

REPORT INFORMATION
  Report Type: 
  Country: FR (occurrence: FR)
  Receive Date: 20121212
  Receipt Date: 20121214
  Transmission Date: 20130627
  Serious: Yes (Death, Life-Threatening)
  Sender: FDA-Public Use
  Company Number: FR-PFIZER INC-2012307383

PATIENT
  Age: 52 Year
  Sex: Female

DRUGS (6)
  1. DOXORUBICIN HCL [Suspect]
     Indication: FOLLICULAR B-CELL NON-HODGKIN^S LYMPHOMA
     Dosage: UNK
     Route: 042
     Dates: start: 20080402, end: 20080820
  2. ETOPOSIDE [Suspect]
     Indication: FOLLICULAR B-CELL NON-HODGKIN^S LYMPHOMA
     Dosage: UNK
     Route: 042
     Dates: start: 20080402, end: 20080820
  3. CYCLOPHOSPHAMIDE [Suspect]
     Indication: FOLLICULAR B-CELL NON-HODGKIN^S LYMPHOMA
     Dosage: UNK
     Route: 042
     Dates: start: 20080402, end: 20080820
  4. PREDNISOLONE [Suspect]
     Indication: FOLLICULAR B-CELL NON-HODGKIN^S LYMPHOMA
     Dosage: UNK
     Route: 042
     Dates: start: 20080402, end: 20080820
  5. INTERFERON ALFA [Suspect]
     Indication: FOLLICULAR B-CELL NON-HODGKIN^S LYMPHOMA
     Dosage: UNK
     Route: 058
     Dates: start: 20080402, end: 20090312
  6. MABTHERA [Suspect]
     Indication: FOLLICULAR B-CELL NON-HODGKIN^S LYMPHOMA
     Dosage: UNK
     Route: 042
     Dates: start: 20080402, end: 20080820

REACTIONS (1)
  - Metastatic malignant melanoma [Fatal]
